FAERS Safety Report 20586329 (Version 1)
Quarter: 2022Q1

REPORT INFORMATION
  Report Type: Other
  Country: TH (occurrence: None)
  Receive Date: 20220313
  Receipt Date: 20220313
  Transmission Date: 20220424
  Serious: Yes (Death, Hospitalization, Other)
  Sender: FDA-Public Use
  Company Number: TH-Neopharma Inc-000564

PATIENT
  Age: 35 Year
  Sex: Male

DRUGS (1)
  1. AMOXICILLIN\CLAVULANIC ACID [Suspect]
     Active Substance: AMOXICILLIN\CLAVULANIC ACID
     Indication: Upper respiratory tract infection
     Dosage: FIRST DOSE AMOXICILLIN/CLAVULANIC ACID AT 300/21.45 MG

REACTIONS (8)
  - Anaphylactic reaction [Fatal]
  - Pneumonia [Fatal]
  - Acute respiratory distress syndrome [Fatal]
  - Septic shock [Fatal]
  - Multiple organ dysfunction syndrome [Fatal]
  - Circulatory collapse [Unknown]
  - Ventricular fibrillation [Unknown]
  - Cardiac arrest [Unknown]
